FAERS Safety Report 23765712 (Version 3)
Quarter: 2025Q2

REPORT INFORMATION
  Report Type: Spontaneous
  Country: US (occurrence: US)
  Receive Date: 20240421
  Receipt Date: 20250627
  Transmission Date: 20250717
  Serious: No
  Sender: SANOFI AVENTIS
  Company Number: US-SA-SAC20240418001150

PATIENT
  Age: 43 Year
  Sex: Female

DRUGS (2)
  1. DUPIXENT [Suspect]
     Active Substance: DUPILUMAB
     Indication: Asthma
     Dosage: 300 MG, QOW
     Route: 058
     Dates: start: 202312
  2. DASATINIB [Concomitant]
     Active Substance: DASATINIB

REACTIONS (2)
  - Abscess [Unknown]
  - Asthma [Unknown]

NARRATIVE: CASE EVENT DATE: 20241001
